FAERS Safety Report 20248072 (Version 1)
Quarter: 2021Q4

REPORT INFORMATION
  Report Type: Spontaneous
  Country: US (occurrence: US)
  Receive Date: 20211229
  Receipt Date: 20211229
  Transmission Date: 20220303
  Serious: Yes (Hospitalization)
  Sender: FDA-Public Use
  Company Number: US-RIGEL PHARMACEUTICALS, INC.-2021FOS000870

PATIENT
  Sex: Male

DRUGS (1)
  1. TAVALISSE [Suspect]
     Active Substance: FOSTAMATINIB
     Indication: Immune thrombocytopenia
     Dosage: 150 MG, BID
     Route: 048
     Dates: start: 20210309

REACTIONS (6)
  - Platelet count decreased [Unknown]
  - Contusion [Unknown]
  - Motion sickness [Unknown]
  - Vomiting [Unknown]
  - Platelet count [Unknown]
  - Nausea [Unknown]

NARRATIVE: CASE EVENT DATE: 20210101
